FAERS Safety Report 5355757-2 (Version None)
Quarter: 2007Q2

REPORT INFORMATION
  Report Type: 
  Country: None (occurrence: None)
  Receive Date: 20070530
  Receipt Date: 20061009
  Transmission Date: 20071010
  Serious: Yes (Other)
  Sender: FDA-Public Use
  Company Number: US200610001775

PATIENT
  Age: 47 Year
  Sex: Female
  Weight: 59 kg

DRUGS (1)
  1. ZYPREXA [Suspect]
     Dosage: 20 MG
     Dates: start: 20030201

REACTIONS (4)
  - HYPERGLYCAEMIA [None]
  - KETOACIDOSIS [None]
  - MENTAL DISORDER [None]
  - PANCREATITIS [None]
